FAERS Safety Report 10168178 (Version 1)
Quarter: 2014Q2

REPORT INFORMATION
  Report Type: Spontaneous
  Country: US (occurrence: US)
  Receive Date: 20140512
  Receipt Date: 20140512
  Transmission Date: 20141212
  Serious: No
  Sender: FDA-Public Use
  Company Number: US-ASTRAZENECA-2013SE63241

PATIENT
  Age: 75 Year
  Sex: Female
  Weight: 75.8 kg

DRUGS (1)
  1. FASLODEX [Suspect]
     Indication: BREAST CANCER METASTATIC
     Dosage: UNKNOWN MONTH
     Route: 030

REACTIONS (4)
  - Back pain [Unknown]
  - Blood pressure increased [Unknown]
  - Body height decreased [Unknown]
  - Hot flush [Unknown]
